FAERS Safety Report 16999683 (Version 1)
Quarter: 2020Q3

REPORT INFORMATION
  Report Type: Report from Study
  Country: GR (occurrence: GR)
  Receive Date: 20191105
  Receipt Date: 20191105
  Transmission Date: 20201105
  Serious: Yes (Other)
  Sender: FDA-Public Use
  Company Number: PHHO2014GR009003

PATIENT
  Age: 59 Year
  Sex: Female
  Weight: 72 kg

DRUGS (3)
  1. FINGOLIMOD. [Suspect]
     Active Substance: FINGOLIMOD
     Dosage: 0.5 MG, QD
     Route: 048
     Dates: start: 20140628
  2. FINGOLIMOD. [Suspect]
     Active Substance: FINGOLIMOD
     Indication: MULTIPLE SCLEROSIS
     Dosage: 0.5 MG, QD
     Route: 048
     Dates: start: 20110324, end: 20140624
  3. DEPON [Concomitant]
     Active Substance: ACETAMINOPHEN
     Indication: HEADACHE
     Dosage: 500 MG, PRN
     Route: 048
     Dates: start: 20091130

REACTIONS (1)
  - Herpes zoster cutaneous disseminated [Recovered/Resolved]

NARRATIVE: CASE EVENT DATE: 20140624
